FAERS Safety Report 18506878 (Version 1)
Quarter: 2020Q4

REPORT INFORMATION
  Report Type: Spontaneous
  Country: US (occurrence: US)
  Receive Date: 20201116
  Receipt Date: 20201116
  Transmission Date: 20210114
  Serious: No
  Sender: FDA-Public Use
  Company Number: US-PFIZER INC-2020359522

PATIENT
  Sex: Female

DRUGS (1)
  1. CABERGOLINE. [Suspect]
     Active Substance: CABERGOLINE
     Dosage: UNK

REACTIONS (6)
  - Product packaging issue [Unknown]
  - Poor quality product administered [Unknown]
  - Panic reaction [Unknown]
  - Product leakage [Unknown]
  - Malaise [Unknown]
  - Product packaging difficult to open [Unknown]
